FAERS Safety Report 10187398 (Version 1)
Quarter: 2014Q2

REPORT INFORMATION
  Report Type: Report from Study
  Country: FR (occurrence: FR)
  Receive Date: 20140522
  Receipt Date: 20140522
  Transmission Date: 20141212
  Serious: Yes (Hospitalization)
  Sender: FDA-Public Use
  Company Number: FR-ROCHE-1404602

PATIENT
  Sex: Female

DRUGS (15)
  1. RITUXIMAB [Suspect]
     Indication: RHEUMATOID ARTHRITIS
     Route: 041
     Dates: start: 20061114
  2. RITUXIMAB [Suspect]
     Route: 041
     Dates: start: 20061127
  3. RITUXIMAB [Suspect]
     Route: 041
     Dates: start: 20080603
  4. RITUXIMAB [Suspect]
     Route: 041
     Dates: start: 20080630
  5. RITUXIMAB [Suspect]
     Route: 041
     Dates: start: 20091012
  6. RITUXIMAB [Suspect]
     Route: 041
     Dates: start: 20091026
  7. RITUXIMAB [Suspect]
     Route: 041
     Dates: start: 20110111
  8. RITUXIMAB [Suspect]
     Route: 041
     Dates: start: 20110125
  9. RITUXIMAB [Suspect]
     Route: 041
     Dates: start: 20111121
  10. RITUXIMAB [Suspect]
     Route: 041
     Dates: start: 20111207
  11. CORTANCYL [Concomitant]
     Route: 065
     Dates: start: 20061127, end: 20120612
  12. CORTANCYL [Concomitant]
     Route: 065
     Dates: start: 20080630
  13. CORTANCYL [Concomitant]
     Route: 065
     Dates: start: 20091026
  14. CORTANCYL [Concomitant]
     Route: 065
     Dates: start: 20110125
  15. CORTANCYL [Concomitant]
     Route: 065
     Dates: start: 20111207

REACTIONS (5)
  - Tendon rupture [Recovered/Resolved]
  - Tooth abscess [Recovered/Resolved]
  - Bronchitis [Recovered/Resolved]
  - Arthralgia [Recovered/Resolved]
  - Diarrhoea [Recovered/Resolved]
